FAERS Safety Report 5481710-4 (Version None)
Quarter: 2007Q4

REPORT INFORMATION
  Report Type: 
  Country: None (occurrence: None)
  Receive Date: 20071010
  Receipt Date: 20071008
  Transmission Date: 20080405
  Serious: Yes (Life-Threatening)
  Sender: FDA-Public Use
  Company Number: JP-SANOFI-SYNTHELABO-F01200701273

PATIENT
  Sex: Female

DRUGS (8)
  1. FAMOTIDINE [Concomitant]
     Dates: start: 20070715
  2. NAUZELIN [Concomitant]
     Dates: start: 20070718, end: 20070724
  3. KYTRIL [Concomitant]
     Dates: start: 20070718, end: 20070720
  4. DECADRON [Concomitant]
     Dates: start: 20070718, end: 20070719
  5. FLUOROURACIL [Suspect]
     Route: 042
     Dates: start: 20070717, end: 20070830
  6. ISOVORIN [Suspect]
     Route: 042
     Dates: start: 20070717, end: 20070828
  7. ELPLAT [Suspect]
     Indication: COLON CANCER
     Route: 042
     Dates: start: 20070717, end: 20070828
  8. BEVACIZUMAB [Suspect]
     Route: 042
     Dates: start: 20070717, end: 20070828

REACTIONS (1)
  - INTESTINAL FISTULA [None]
